FAERS Safety Report 5465704-0 (Version None)
Quarter: 2007Q3

REPORT INFORMATION
  Report Type: 
  Country: None (occurrence: None)
  Receive Date: 20070919
  Receipt Date: 20070919
  Transmission Date: 20080115
  Serious: Yes (Other)
  Sender: FDA-Public Use
  Company Number: None

PATIENT
  Sex: Male
  Weight: 122.4712 kg

DRUGS (5)
  1. PHENYTOIN EXT CAPS 100MG [Suspect]
     Indication: CONVULSION
     Dosage: 5 DAILY AS DIRECTED
     Dates: start: 20070207, end: 20070515
  2. PHENYTOIN EXT CAPS  100MG [Suspect]
  3. PRIMIDONE [Concomitant]
  4. LIPITOR [Concomitant]
  5. MICARDIS [Concomitant]

REACTIONS (2)
  - CONVULSION [None]
  - PHARMACEUTICAL PRODUCT COMPLAINT [None]
